FAERS Safety Report 9160872 (Version 1)
Quarter: 2013Q1

REPORT INFORMATION
  Report Type: Spontaneous
  Country: DK (occurrence: None)
  Receive Date: 20130219
  Receipt Date: 20130219
  Transmission Date: 20140127
  Serious: Yes (Other)
  Sender: FDA-Public Use
  Company Number: FK201300417

PATIENT
  Age: 57 Year
  Sex: Female

DRUGS (7)
  1. PACLITAXEL [Suspect]
  2. HERCEPTIN [Suspect]
     Dosage: 520 MG, 1 IN 3 WK, INTRAVENOUS (NOT OTHERWISE SPECIFIED)
     Dates: start: 200804
  3. XELODA [Suspect]
     Route: 048
     Dates: start: 20100913, end: 20100927
  4. TAXOTERE [Suspect]
     Dates: start: 200804
  5. LAPATINIB [Suspect]
  6. ERIBULIN [Suspect]
  7. VINORELBINE [Suspect]

REACTIONS (3)
  - Malignant neoplasm progression [None]
  - Breast cancer [None]
  - Wound [None]
